FAERS Safety Report 9732225 (Version 1)
Quarter: 2013Q4

REPORT INFORMATION
  Report Type: Spontaneous
  Country: US (occurrence: None)
  Receive Date: 20131204
  Receipt Date: 20131204
  Transmission Date: 20140711
  Serious: Yes (Hospitalization)
  Sender: FDA-Public Use
  Company Number: None

PATIENT
  Age: 77 Year
  Sex: Male
  Weight: 106.1 kg

DRUGS (1)
  1. ASPIRIN 81 MG [Suspect]
     Indication: CARDIOVASCULAR EVENT PROPHYLAXIS
     Dosage: 81 MG, EVERY DAY, PO
     Route: 048
     Dates: start: 20051012

REACTIONS (10)
  - Anaemia [None]
  - Dyspnoea [None]
  - Dizziness [None]
  - Fatigue [None]
  - Melaena [None]
  - Decreased appetite [None]
  - Dizziness [None]
  - Sedation [None]
  - Tachypnoea [None]
  - Gastric haemorrhage [None]
